FAERS Safety Report 19196396 (Version 1)
Quarter: 2021Q2

REPORT INFORMATION
  Report Type: Report from Study
  Country: US (occurrence: US)
  Receive Date: 20210429
  Receipt Date: 20210429
  Transmission Date: 20210717
  Serious: Yes (Other)
  Sender: FDA-Public Use
  Company Number: US-GILEAD-2021-0524307

PATIENT
  Age: 40 Year
  Sex: Male

DRUGS (2)
  1. UPTRAVI [Concomitant]
     Active Substance: SELEXIPAG
  2. AMBRISENTAN [Suspect]
     Active Substance: AMBRISENTAN
     Indication: PULMONARY ARTERIAL HYPERTENSION
     Dosage: 5 MG, QD
     Route: 048
     Dates: start: 20210120

REACTIONS (14)
  - Pneumonia [Unknown]
  - Pleural effusion [Unknown]
  - Malaise [Not Recovered/Not Resolved]
  - Pulmonary hypertension [Unknown]
  - Oxygen saturation decreased [Unknown]
  - Productive cough [Unknown]
  - Pyrexia [Unknown]
  - Pneumonitis [Unknown]
  - Fatigue [Not Recovered/Not Resolved]
  - Lower respiratory tract infection [Unknown]
  - Sinusitis [Not Recovered/Not Resolved]
  - Asthma [Unknown]
  - Wheezing [Unknown]
  - Bronchitis [Unknown]
